FAERS Safety Report 6467226-7 (Version None)
Quarter: 2009Q4

REPORT INFORMATION
  Report Type: 
  Country: None (occurrence: None)
  Receive Date: 20091118
  Receipt Date: 20090819
  Transmission Date: 20100525
  Serious: Yes (Hospitalization)
  Sender: FDA-Public Use
  Company Number: 2009BI026353

PATIENT
  Age: 47 Year
  Sex: Female

DRUGS (1)
  1. TYSABRI [Suspect]
     Indication: MULTIPLE SCLEROSIS
     Dosage: IV
     Route: 042
     Dates: start: 20090311

REACTIONS (5)
  - BLOOD POTASSIUM DECREASED [None]
  - CYSTITIS [None]
  - KIDNEY INFECTION [None]
  - SEPSIS [None]
  - WHITE BLOOD CELL COUNT INCREASED [None]
